FAERS Safety Report 6825980-6 (Version None)
Quarter: 2010Q3

REPORT INFORMATION
  Report Type: 
  Country: None (occurrence: None)
  Receive Date: 20100709
  Receipt Date: 20100412
  Transmission Date: 20110219
  Serious: No
  Sender: FDA-Public Use
  Company Number: A0854612A

PATIENT
  Age: 4 Year
  Sex: Male

DRUGS (1)
  1. EXTINA [Suspect]
     Indication: PRODUCT USED FOR UNKNOWN INDICATION
     Route: 061
     Dates: start: 20100409, end: 20100412

REACTIONS (1)
  - APPLICATION SITE PAIN [None]
